FAERS Safety Report 9219380 (Version 2)
Quarter: 2013Q2

REPORT INFORMATION
  Report Type: Report from Study
  Country: JP (occurrence: JP)
  Receive Date: 20130409
  Receipt Date: 20130528
  Transmission Date: 20140414
  Serious: Yes (Death, Hospitalization, Disabling)
  Sender: FDA-Public Use
  Company Number: JP-AMGEN-JPNCT2013024380

PATIENT
  Age: 73 Year
  Sex: Female
  Weight: 37 kg

DRUGS (26)
  1. DARBEPOETIN ALFA [Suspect]
     Indication: NEPHROGENIC ANAEMIA
     Dosage: 120 MUG, QD
     Route: 058
     Dates: start: 20110104, end: 20110104
  2. DARBEPOETIN ALFA [Suspect]
     Dosage: 120 MUG, Q2WK
     Route: 058
     Dates: start: 20110121, end: 20110204
  3. DARBEPOETIN ALFA [Suspect]
     Dosage: 120 MUG, Q2WK
     Route: 058
     Dates: start: 20110330, end: 20110509
  4. DARBEPOETIN ALFA [Suspect]
     Dosage: 120 MUG, Q2WK
     Route: 058
     Dates: start: 20110606, end: 20110704
  5. DARBEPOETIN ALFA [Suspect]
     Dosage: 120 MUG, Q2WK
     Route: 058
     Dates: start: 20110725, end: 20110725
  6. DARBEPOETIN ALFA [Suspect]
     Dosage: 60 MUG, Q2WK
     Route: 058
     Dates: start: 20110822, end: 20110905
  7. DARBEPOETIN ALFA [Suspect]
     Dosage: 60 MUG, QD
     Route: 058
     Dates: start: 20111017, end: 20111017
  8. DARBEPOETIN ALFA [Suspect]
     Dosage: 120 MUG, Q2WK
     Route: 058
     Dates: start: 20111107, end: 20111121
  9. DARBEPOETIN ALFA [Suspect]
     Dosage: 60 MUG, QD
     Route: 058
     Dates: start: 20111205, end: 20111205
  10. DARBEPOETIN ALFA [Suspect]
     Dosage: 40 MUG, QD
     Route: 058
     Dates: start: 20120123, end: 20120123
  11. DARBEPOETIN ALFA [Suspect]
     Dosage: 60 MUG, QWK
     Route: 058
     Dates: start: 20120220, end: 20120309
  12. DARBEPOETIN ALFA [Suspect]
     Dosage: 120 MUG, Q2WK
     Route: 058
     Dates: start: 20120321, end: 20120416
  13. DARBEPOETIN ALFA [Suspect]
     Dosage: 120 MUG, Q2WK
     Route: 058
     Dates: start: 20120521, end: 20120618
  14. DARBEPOETIN ALFA [Suspect]
     Dosage: 60 MUG, QD
     Route: 058
     Dates: start: 20120718, end: 20120718
  15. DARBEPOETIN ALFA [Suspect]
     Dosage: 120 MUG, QD
     Route: 058
     Dates: start: 20120801, end: 20120801
  16. DARBEPOETIN ALFA [Suspect]
     Dosage: 120 MUG, Q2WK
     Route: 058
     Dates: start: 20120822, end: 20120919
  17. DARBEPOETIN ALFA [Suspect]
     Dosage: 120 MUG, QD
     Route: 058
     Dates: start: 20121010, end: 20121010
  18. MICARDIS [Concomitant]
     Dosage: UNK
     Route: 048
  19. FERROMIA [Concomitant]
     Dosage: UNK
     Route: 048
  20. AMLODIN [Concomitant]
     Dosage: UNK
     Route: 048
  21. CARDENALIN [Concomitant]
     Dosage: UNK
     Route: 048
  22. THYRADIN [Concomitant]
     Dosage: UNK
     Route: 048
  23. LAXOBERON [Concomitant]
     Dosage: UNK
     Route: 048
  24. KLARICID [Concomitant]
     Dosage: UNK
     Route: 048
  25. PANALDINE [Concomitant]
     Dosage: UNK
     Route: 048
  26. BLOOD TRANSFUSION, AUXILIARY PRODUCTS [Concomitant]
     Dosage: UNK
     Dates: start: 20121017, end: 20121112

REACTIONS (3)
  - Sepsis [Fatal]
  - Intestinal obstruction [Not Recovered/Not Resolved]
  - Pneumonia aspiration [Not Recovered/Not Resolved]
